FAERS Safety Report 7604255-1 (Version None)
Quarter: 2011Q3

REPORT INFORMATION
  Report Type: 
  Country: None (occurrence: None)
  Receive Date: 20110712
  Receipt Date: 20110706
  Transmission Date: 20111222
  Serious: Yes (Death, Other)
  Sender: FDA-Public Use
  Company Number: JP-PFIZER INC-2011068087

PATIENT
  Age: 76 Year
  Sex: Male

DRUGS (17)
  1. TRANSAMIN [Concomitant]
     Indication: HAEMOSTASIS
     Dosage: 1 G, UNK
     Route: 051
     Dates: start: 20110214, end: 20110217
  2. SODIUM BICARBONATE [Concomitant]
     Indication: ACIDOSIS
     Dosage: 250 ML, UNK
     Route: 051
     Dates: start: 20110219, end: 20110219
  3. SANDOGLOBULIN [Concomitant]
     Indication: INFECTION
     Dosage: 5 G, UNK
     Route: 051
     Dates: start: 20110217, end: 20110219
  4. NICARDIPINE HCL [Concomitant]
     Indication: HYPERTENSION
     Dosage: 120 MG, UNK
     Route: 051
     Dates: start: 20110215, end: 20110215
  5. FAMOTIDINE [Concomitant]
     Indication: PROPHYLAXIS AGAINST GASTROINTESTINAL ULCER
     Dosage: 40 MG, UNK
     Route: 051
     Dates: start: 20110214, end: 20110305
  6. GLYCEOL [Concomitant]
     Indication: BRAIN OEDEMA
     Dosage: 400 ML, UNK
     Route: 051
     Dates: start: 20110217, end: 20110220
  7. ZOSYN [Concomitant]
     Indication: INFECTION
     Dosage: 13.5 G, UNK
     Route: 051
     Dates: start: 20110215, end: 20110222
  8. EDARAVONE [Suspect]
     Indication: THROMBOTIC CEREBRAL INFARCTION
     Dosage: 30 MG, 2X/DAY
     Route: 041
     Dates: start: 20110214, end: 20110215
  9. NITRAZEPAM [Concomitant]
     Indication: BRAIN OEDEMA
     Dosage: 72 MG, UNK
     Route: 051
     Dates: start: 20110214, end: 20110216
  10. CARBAZOCHROME SODIUM SULFONATE [Concomitant]
     Indication: HAEMOSTASIS
     Dosage: 100 MG, UNK
     Route: 051
     Dates: start: 20110214, end: 20110217
  11. PLAVIX [Suspect]
     Indication: THROMBOTIC CEREBRAL INFARCTION
     Dosage: 75 MG, DAILY
     Route: 048
     Dates: start: 20110214, end: 20110214
  12. DILTIAZEM HCL [Concomitant]
     Indication: HYPERTENSION
     Dosage: 240 MG, UNK
     Route: 051
     Dates: start: 20110214, end: 20110215
  13. MANNIGEN [Concomitant]
     Indication: BRAIN OEDEMA
     Dosage: 500 ML, UNK
     Route: 051
     Dates: start: 20110214, end: 20110220
  14. ARGATROBAN [Suspect]
     Indication: THROMBOTIC CEREBRAL INFARCTION
     Dosage: 60 MG, DAILY
     Route: 041
     Dates: start: 20110214, end: 20110214
  15. INOVAN [Concomitant]
     Indication: SHOCK
     Dosage: 450 MG, UNK
     Route: 051
     Dates: start: 20110215, end: 20110215
  16. GRTPA [Suspect]
     Indication: THROMBOTIC CEREBRAL INFARCTION
     Dosage: 34.8 ML, 1X/DAY
     Route: 042
     Dates: start: 20110214, end: 20110214
  17. PITRESSIN [Concomitant]
     Indication: DIABETES INSIPIDUS
     Dosage: 5 UT
     Route: 051
     Dates: start: 20110215, end: 20110217

REACTIONS (2)
  - SEPTIC SHOCK [None]
  - HAEMORRHAGIC INFARCTION [None]
